FAERS Safety Report 5698500-X (Version None)
Quarter: 2008Q2

REPORT INFORMATION
  Report Type: 
  Country: None (occurrence: None)
  Receive Date: 20080408
  Receipt Date: 20060717
  Transmission Date: 20081010
  Serious: No
  Sender: FDA-Public Use
  Company Number: US-BAYER-US-2006-019407

PATIENT
  Age: 58 Year
  Sex: Female
  Weight: 45 kg

DRUGS (4)
  1. CLIMARA [Suspect]
     Indication: HOT FLUSH
     Route: 062
     Dates: start: 20010101, end: 20030101
  2. CLIMARA [Suspect]
     Route: 062
     Dates: start: 20010101, end: 20030101
  3. CLIMARA [Suspect]
     Route: 062
     Dates: start: 20030101
  4. NEXIUM [Concomitant]
     Indication: GASTROOESOPHAGEAL REFLUX DISEASE

REACTIONS (2)
  - AGITATION [None]
  - PALPITATIONS [None]
